FAERS Safety Report 6912103-8 (Version None)
Quarter: 2010Q3

REPORT INFORMATION
  Report Type: 
  Country: None (occurrence: None)
  Receive Date: 20100806
  Receipt Date: 20071216
  Transmission Date: 20110219
  Serious: No
  Sender: FDA-Public Use
  Company Number: US-PFIZER INC-2007106625

PATIENT
  Sex: Female
  Weight: 80 kg

DRUGS (3)
  1. DETROL LA [Suspect]
     Indication: BLADDER DISORDER
     Dates: start: 20000101, end: 20060101
  2. ACTONEL [Concomitant]
  3. VITAMIN TAB [Concomitant]

REACTIONS (1)
  - WEIGHT DECREASED [None]
